FAERS Safety Report 8810618 (Version 1)
Quarter: 2012Q4

REPORT INFORMATION
  Report Type: 
  Country: NZ (occurrence: NZ)
  Receive Date: 20120927
  Receipt Date: 20120927
  Transmission Date: 20130627
  Serious: Yes (Hospitalization)
  Sender: FDA-Public Use
  Company Number: NZ-009507513-1209NZL010432

PATIENT
  Age: 83 Year
  Sex: Male

DRUGS (9)
  1. FOSAMAX [Suspect]
     Dosage: 70 mg, qw
     Route: 048
  2. PREDNISONE [Concomitant]
     Indication: POLYARTERITIS NODOSA
     Dosage: 5 mg, qd
     Route: 048
  3. PREDNISONE [Concomitant]
     Indication: RHEUMATOID ARTHRITIS
  4. PREDNISONE [Concomitant]
     Indication: RASH
  5. METHOTREXATE [Concomitant]
     Indication: POLYARTERITIS NODOSA
     Dosage: 15 mg, qw
     Route: 048
  6. METHOTREXATE [Concomitant]
     Indication: RHEUMATOID ARTHRITIS
  7. OMEPRAZOLE [Concomitant]
     Dosage: 20 mg, qd
  8. FOLIC ACID [Concomitant]
  9. ACETAMINOPHEN [Concomitant]
     Dosage: UNK, prn

REACTIONS (2)
  - Oesophagitis ulcerative [Unknown]
  - Oesophagitis chemical [Unknown]
